FAERS Safety Report 8906165 (Version 2)
Quarter: 2013Q3

REPORT INFORMATION
  Report Type: Spontaneous
  Country: JP (occurrence: None)
  Receive Date: 20121109
  Receipt Date: 20130716
  Transmission Date: 20140515
  Serious: Yes (Hospitalization, Other)
  Sender: FDA-Public Use
  Company Number: 2012-003912

PATIENT
  Age: 83 Year
  Sex: Female

DRUGS (7)
  1. ACTONEL [Suspect]
     Indication: OSTEOPOROSIS
     Route: 048
     Dates: start: 201009, end: 20120320
  2. RENIVACE (ENALAPRIL MALEATE) [Concomitant]
  3. NORVASC (AMLODIPINE BESILATE) [Concomitant]
  4. ARICEPT (DONEPEZIL HYDROCHLORIDE) [Concomitant]
  5. LIVALO (PITAVASTATIN CALCIUM) [Concomitant]
  6. LOXONIN (LOXOPROFEN SODIUM0 [Concomitant]
  7. MUCOSTA (REBAMIPIDE) [Concomitant]

REACTIONS (3)
  - Atypical femur fracture [None]
  - Fall [None]
  - Low turnover osteopathy [None]
